FAERS Safety Report 21621104 (Version 1)
Quarter: 2022Q4

REPORT INFORMATION
  Report Type: Spontaneous
  Country: US (occurrence: None)
  Receive Date: 20221118
  Receipt Date: 20221118
  Transmission Date: 20230112
  Serious: Yes (Hospitalization)
  Sender: FDA-Public Use
  Company Number: None

PATIENT
  Age: 66 Year
  Sex: Male
  Weight: 86.18 kg

DRUGS (19)
  1. TEMOZOLOMIDE [Suspect]
     Active Substance: TEMOZOLOMIDE
     Indication: Brain neoplasm malignant
     Route: 048
  2. TEMOZOLOMIDE [Suspect]
     Active Substance: TEMOZOLOMIDE
  3. BACTRIM DS [Concomitant]
     Active Substance: SULFAMETHOXAZOLE\TRIMETHOPRIM
  4. CYANOCOBALAMIN [Concomitant]
     Active Substance: CYANOCOBALAMIN
  5. CYCLOBENZAPRINE [Concomitant]
  6. CYMBALTA [Concomitant]
  7. DEXAMETHASONE [Concomitant]
  8. ECOTRIN LOW STRENGTH [Concomitant]
  9. FLOMAX [Concomitant]
  10. KEPPRA [Concomitant]
  11. LIPITOR [Concomitant]
  12. MS CONTIN [Concomitant]
  13. NEURONTIN [Concomitant]
  14. NICODERM [Concomitant]
  15. NITROSTAT [Concomitant]
  16. NORCO [Concomitant]
     Active Substance: ACETAMINOPHEN\HYDROCODONE BITARTRATE
  17. NORVASC [Concomitant]
  18. PANTOPRAZOLE [Concomitant]
  19. TRELEGY ELLIPTA [Concomitant]
     Active Substance: FLUTICASONE FUROATE\UMECLIDINIUM BROMIDE\VILANTEROL TRIFENATATE

REACTIONS (1)
  - Intracardiac thrombus [None]
